FAERS Safety Report 5047244-6 (Version None)
Quarter: 2006Q3

REPORT INFORMATION
  Report Type: 
  Country: None (occurrence: None)
  Receive Date: 20060703
  Receipt Date: 20060623
  Transmission Date: 20061208
  Serious: Yes (Death)
  Sender: FDA-Public Use
  Company Number: 2006-06-1755

PATIENT
  Age: 78 Year
  Sex: Female

DRUGS (10)
  1. SALBUTAMOL (ALBUTEROL) ORAL AEROSOL [Suspect]
     Dosage: 2PUFFS Q4HPRN ORAL AER I
     Route: 055
  2. SPIRIVA (TIOTROPIUM BROMIDE) INHALATION SOLUTION [Suspect]
     Dosage: 18 MCG QD INHALATION
     Route: 055
  3. DEXAMETHASONE TAB [Suspect]
     Dosage: 4MG AM ORAL
     Route: 048
  4. LACTULOSE [Suspect]
     Dosage: 10-20ML BID
  5. LANSOPRAZOLE [Suspect]
     Dosage: 15 MG AM ORAL
     Route: 048
  6. ACETAMINOPHEN [Suspect]
     Dosage: 1GM QID ORAL
     Route: 048
  7. QUININE SULFATE [Suspect]
     Dosage: 300MG PM ORAL
     Route: 048
  8. SENNA [Suspect]
     Dosage: 7.5MG 1-2/PM ORAL
     Route: 048
  9. SERETIDE (SALMETEROL XINAFOATE/FLUTICASONE PROPIONAT [Suspect]
     Dosage: 250MCG BID INHALATION
     Route: 055
  10. CETOSTEARYL ALCOHOL TOPICALS [Suspect]

REACTIONS (1)
  - NON-HODGKIN'S LYMPHOMA [None]
